FAERS Safety Report 16804421 (Version 7)
Quarter: 2022Q1

REPORT INFORMATION
  Report Type: Spontaneous
  Country: US (occurrence: US)
  Receive Date: 20190913
  Receipt Date: 20220126
  Transmission Date: 20220424
  Serious: No
  Sender: FDA-Public Use
  Company Number: US-PFIZER INC-2019393769

PATIENT
  Age: 72 Year
  Sex: Female
  Weight: 120 kg

DRUGS (14)
  1. INFLIXIMAB [Suspect]
     Active Substance: INFLIXIMAB
     Dosage: UNK
     Route: 065
  2. DOXYCYCLINE HYCLATE [Suspect]
     Active Substance: DOXYCYCLINE HYCLATE
     Dosage: UNK
  3. FLAGYL [Suspect]
     Active Substance: METRONIDAZOLE\METRONIDAZOLE HYDROCHLORIDE
     Dosage: UNK
  4. NAPROXEN [Suspect]
     Active Substance: NAPROXEN
     Dosage: UNK
  5. RIFAXIMIN [Suspect]
     Active Substance: RIFAXIMIN
     Dosage: UNK
  6. TIZANIDINE [Suspect]
     Active Substance: TIZANIDINE
     Dosage: UNK
  7. CEFTIN [Suspect]
     Active Substance: CEFUROXIME AXETIL
     Dosage: UNK
  8. TOLMETIN [Suspect]
     Active Substance: TOLMETIN
     Dosage: UNK
  9. BACTRIM [Suspect]
     Active Substance: SULFAMETHOXAZOLE\TRIMETHOPRIM
     Dosage: UNK
  10. REMICADE [Suspect]
     Active Substance: INFLIXIMAB
     Dosage: UNK
  11. MOTRIN [Suspect]
     Active Substance: IBUPROFEN
     Dosage: UNK
  12. LODINE [Suspect]
     Active Substance: ETODOLAC
     Dosage: UNK
  13. ASPARTAME [Suspect]
     Active Substance: ASPARTAME
     Dosage: UNK
  14. SULINDAC [Suspect]
     Active Substance: SULINDAC
     Dosage: UNK

REACTIONS (3)
  - Drug hypersensitivity [Unknown]
  - Urticaria [Unknown]
  - Pruritus [Unknown]

NARRATIVE: CASE EVENT DATE: 20200903
